FAERS Safety Report 8783349 (Version 1)
Quarter: 2012Q4

REPORT INFORMATION
  Report Type: 
  Country: US (occurrence: US)
  Receive Date: 20120913
  Receipt Date: 20120913
  Transmission Date: 20130627
  Serious: No
  Sender: FDA-Public Use
  Company Number: US-PFIZER INC-2012225088

PATIENT
  Age: 83 Year
  Sex: Female
  Weight: 77.1 kg

DRUGS (3)
  1. DETROL [Suspect]
     Indication: BLADDER DISORDER
     Dosage: UNK
     Route: 048
  2. DETROL [Suspect]
     Dosage: UNK
     Route: 048
     Dates: start: 2011
  3. DETROL [Suspect]
     Dosage: 2 DF, (two tablets in a day)
     Route: 048
     Dates: start: 201209

REACTIONS (3)
  - Dry mouth [Not Recovered/Not Resolved]
  - Insomnia [Unknown]
  - Feeling abnormal [Unknown]
